FAERS Safety Report 8289501-6 (Version None)
Quarter: 2012Q2

REPORT INFORMATION
  Report Type: 
  Country: None (occurrence: None)
  Receive Date: 20120417
  Receipt Date: 20120405
  Transmission Date: 20120825
  Serious: Yes (Other)
  Sender: FDA-Public Use
  Company Number: US-BRISTOL-MYERS SQUIBB COMPANY-16453300

PATIENT
  Age: 56 Year
  Sex: Female
  Weight: 75 kg

DRUGS (27)
  1. CHLOR-TRIMETON [Concomitant]
     Indication: HYPERSENSITIVITY
     Dosage: 1DF= 1 TAB
     Route: 048
     Dates: start: 19780101
  2. OXALIPLATIN [Suspect]
     Indication: COLORECTAL CANCER
     Dosage: 30MAR12-ONG.
     Route: 042
     Dates: start: 20120302
  3. ALBUTEROL [Concomitant]
     Indication: ASTHMA
     Dosage: 1DF= 1-2 PUFFS
     Route: 045
     Dates: start: 19770101
  4. IBUPROFEN [Concomitant]
     Indication: PAIN
     Dosage: 2-3 TABS
     Route: 048
     Dates: start: 19820101
  5. VITAMIN D [Concomitant]
     Indication: SUPPLEMENTATION THERAPY
     Dosage: TABS
     Route: 048
     Dates: start: 20120201
  6. TRAMADOL HCL [Concomitant]
     Indication: BACK PAIN
     Dosage: Q 4-6 HR,1 TAB
     Route: 048
     Dates: start: 20120229
  7. CIPROFLOXACIN HCL [Concomitant]
     Dosage: 1 TAB, 1 MORE WEEK
     Route: 048
  8. FLAGYL [Concomitant]
     Dosage: TAB,1 MORE WEEK
     Route: 048
  9. PAROXETINE [Concomitant]
     Indication: DEPRESSION
     Dosage: 1 TAB
     Route: 048
     Dates: start: 20070101
  10. SELENIUM [Concomitant]
     Indication: SUPPLEMENTATION THERAPY
     Dosage: 1 TAB
     Route: 048
     Dates: start: 20120101
  11. IRON [Concomitant]
     Dosage: 1 DF : 1 TAB,OCCASIONALLY
     Route: 048
  12. PROCHLORPERAZINE [Concomitant]
     Indication: NAUSEA
     Dosage: 1 TAB,EVERY 6HRS
     Route: 048
  13. FLAXSEED OIL [Concomitant]
     Indication: SUPPLEMENTATION THERAPY
     Dosage: CAPS
     Route: 048
     Dates: start: 20100101
  14. IMODIUM [Concomitant]
     Dosage: 1 DF : 1-2 TAB
     Route: 048
  15. DASATINIB [Suspect]
     Indication: COLORECTAL CANCER
     Dosage: 02MAR12-12MAR12,30MAR12-04APR12.
     Route: 048
     Dates: start: 20120302, end: 20120404
  16. FLUOROURACIL [Suspect]
     Indication: COLORECTAL CANCER
     Dosage: 30MAR12-ONG.
     Route: 042
     Dates: start: 20120302
  17. ACETAMINOPHEN [Concomitant]
     Indication: PAIN
     Dosage: 1 DF : 500MG,2 TABS
     Route: 048
     Dates: start: 19820101
  18. MULTI-VITAMINS [Concomitant]
     Indication: SUPPLEMENTATION THERAPY
     Dosage: 1DF: 1TAB
     Route: 048
     Dates: start: 20111101
  19. ZYRTEC [Concomitant]
     Indication: HYPERSENSITIVITY
     Dosage: 1TAB-QHS
     Route: 048
     Dates: start: 20110201
  20. FLOVENT [Concomitant]
     Indication: ASTHMA
     Dosage: 1DF=110 MCG,1-2 PUFFS
     Route: 055
     Dates: start: 19950101
  21. LISINOPRIL [Concomitant]
     Indication: HYPERTENSION
     Dosage: 1 DF: 20MG,1/2 TAB
     Route: 048
     Dates: start: 20070101
  22. ZOLPIDEM [Concomitant]
     Indication: INSOMNIA
     Dosage: QHS,1 TAB
     Route: 048
     Dates: start: 20100101
  23. GAS-X [Concomitant]
     Indication: ABDOMINAL DISTENSION
     Dosage: 1DF=1-2 TABS
     Route: 048
     Dates: start: 20100101
  24. PROCHLORPERAZINE [Concomitant]
     Indication: VOMITING
     Dosage: 1 TAB,EVERY 6HRS
     Route: 048
  25. CETUXIMAB [Suspect]
     Indication: COLORECTAL CANCER
     Dosage: 30MAR12-ONG.
     Route: 042
     Dates: start: 20120302
  26. SINGULAIR [Concomitant]
     Indication: ASTHMA
     Dosage: 1 TAB
     Route: 048
     Dates: start: 20000101
  27. LOMOTIL [Concomitant]
     Dosage: 1 DF: 1-2 TAB,QID
     Route: 048

REACTIONS (4)
  - PYREXIA [None]
  - OEDEMA PERIPHERAL [None]
  - DIARRHOEA [None]
  - ASCITES [None]
